FAERS Safety Report 8605896-5 (Version None)
Quarter: 2012Q3

REPORT INFORMATION
  Report Type: 
  Country: None (occurrence: None)
  Receive Date: 20120820
  Receipt Date: 20120810
  Transmission Date: 20120928
  Serious: Yes (Hospitalization)
  Sender: FDA-Public Use
  Company Number: FR-GLAXOSMITHKLINE-B0822019A

PATIENT
  Sex: Female

DRUGS (16)
  1. ACETAMINOPHEN [Suspect]
     Indication: PAIN
     Dosage: 3G PER DAY
     Route: 042
     Dates: start: 20120605, end: 20120608
  2. FERROUS SULFATE TAB [Concomitant]
  3. METRONIDAZOLE [Suspect]
     Indication: PRODUCT USED FOR UNKNOWN INDICATION
     Dosage: 1.5G PER DAY
     Route: 042
     Dates: start: 20120608, end: 20120609
  4. CHOLECALCIFEROL [Suspect]
     Indication: VITAMIN D DEFICIENCY
     Dosage: 2UNIT PER DAY
     Route: 048
     Dates: start: 20120606, end: 20120607
  5. TRANSIPEG [Concomitant]
  6. CEFTRIAXONE [Suspect]
     Indication: PRODUCT USED FOR UNKNOWN INDICATION
     Dosage: 1G PER DAY
     Route: 042
     Dates: start: 20120605, end: 20120609
  7. CRESTOR [Suspect]
     Indication: DYSLIPIDAEMIA
     Dosage: 10MG PER DAY
     Route: 048
     Dates: start: 20120101, end: 20120608
  8. RISPERIDONE [Suspect]
     Indication: DEPRESSION
     Dosage: 2MG PER DAY
     Route: 048
     Dates: start: 20120501, end: 20120613
  9. VENLAFAXINE [Suspect]
     Indication: DEPRESSION
     Route: 048
     Dates: end: 20120612
  10. ASPIRIN [Concomitant]
  11. ARIXTRA [Suspect]
     Indication: THROMBOSIS PROPHYLAXIS
     Dosage: 2.5MG PER DAY
     Route: 058
     Dates: start: 20120501
  12. BISOPROLOL FUMARATE [Suspect]
     Indication: CARDIAC FAILURE
     Dosage: 1.25MG PER DAY
     Route: 048
     Dates: start: 20120607, end: 20120608
  13. AMLODIPINE [Suspect]
     Indication: HYPERTENSION
     Dosage: 2MG PER DAY
     Route: 048
     Dates: start: 20120602
  14. LASIX [Suspect]
     Indication: CARDIAC FAILURE
     Dosage: 80MG PER DAY
     Route: 048
     Dates: start: 20120530, end: 20120605
  15. POTASSIUM CHLORIDE [Suspect]
     Indication: HYPOKALAEMIA
     Dosage: 4TAB PER DAY
     Route: 048
     Dates: start: 20120530
  16. DIGOXIN [Suspect]
     Indication: CARDIAC FAILURE
     Route: 048
     Dates: start: 20120601

REACTIONS (1)
  - CYTOLYTIC HEPATITIS [None]
